FAERS Safety Report 9186889 (Version 1)
Quarter: 2013Q1

REPORT INFORMATION
  Report Type: Spontaneous
  Country: US (occurrence: US)
  Receive Date: 20130325
  Receipt Date: 20130325
  Transmission Date: 20140127
  Serious: No
  Sender: FDA-Public Use
  Company Number: US-PFIZER INC-2013096282

PATIENT
  Age: 27 Year
  Sex: Male
  Weight: 61.22 kg

DRUGS (3)
  1. IBUPROFEN [Suspect]
     Indication: PAIN
     Dosage: 200 MG, UNK
  2. CHLORPHENIRAMINE [Concomitant]
     Indication: ANXIETY
     Dosage: UNK
  3. DIPHENHYDRAMINE [Concomitant]
     Indication: SLEEP DISORDER
     Dosage: UNK

REACTIONS (1)
  - Drug ineffective [Unknown]
